FAERS Safety Report 18341029 (Version 2)
Quarter: 2020Q4

REPORT INFORMATION
  Report Type: Spontaneous
  Country: FR (occurrence: FR)
  Receive Date: 20201003
  Receipt Date: 20201021
  Transmission Date: 20210113
  Serious: Yes (Hospitalization, Other)
  Sender: FDA-Public Use
  Company Number: GXKR2010FR04542

PATIENT
  Age: 68 Year
  Sex: Male

DRUGS (2)
  1. AMOXICILLIN. [Suspect]
     Active Substance: AMOXICILLIN
     Indication: PHARYNGITIS
     Dosage: UNK, (TABLET)
     Route: 048
  2. LISINOPRIL. [Suspect]
     Active Substance: LISINOPRIL
     Indication: PRODUCT USED FOR UNKNOWN INDICATION
     Dosage: UNK
     Route: 048

REACTIONS (8)
  - Eosinophilia [Unknown]
  - Pyrexia [Unknown]
  - Condition aggravated [Unknown]
  - Rash [Unknown]
  - Drug reaction with eosinophilia and systemic symptoms [Unknown]
  - Face oedema [Unknown]
  - Pharyngitis [Unknown]
  - Hepatitis [Unknown]
